FAERS Safety Report 6046267-8 (Version None)
Quarter: 2009Q1

REPORT INFORMATION
  Report Type: 
  Country: None (occurrence: None)
  Receive Date: 20090122
  Receipt Date: 20090119
  Transmission Date: 20090719
  Serious: Yes (Life-Threatening)
  Sender: FDA-Public Use
  Company Number: IT-BRISTOL-MYERS SQUIBB COMPANY-14452718

PATIENT
  Age: 52 Year
  Sex: Male

DRUGS (3)
  1. KARVEA TABS 300 MG [Suspect]
     Indication: ESSENTIAL HYPERTENSION
     Route: 048
     Dates: start: 20020101, end: 20081121
  2. ESIDRIX [Suspect]
     Indication: HYPONATRAEMIA
  3. AMARYL [Suspect]
     Indication: HYPONATRAEMIA

REACTIONS (2)
  - HYPERTENSIVE CRISIS [None]
  - HYPONATRAEMIA [None]
